FAERS Safety Report 9825836 (Version 1)
Quarter: 2014Q1

REPORT INFORMATION
  Report Type: Spontaneous
  Country: MX (occurrence: MX)
  Receive Date: 20140117
  Receipt Date: 20140117
  Transmission Date: 20141002
  Serious: Yes (Hospitalization)
  Sender: FDA-Public Use
  Company Number: MX-JNJFOC-20140107049

PATIENT
  Age: 28 Year
  Sex: Male
  Weight: 69 kg

DRUGS (1)
  1. REMICADE [Suspect]
     Indication: COLITIS ULCERATIVE
     Route: 042
     Dates: start: 20130303

REACTIONS (3)
  - Tuberculosis [Not Recovered/Not Resolved]
  - Pneumonia [Recovered/Resolved]
  - Colitis ulcerative [Unknown]
